FAERS Safety Report 6051340-4 (Version None)
Quarter: 2009Q1

REPORT INFORMATION
  Report Type: 
  Country: None (occurrence: None)
  Receive Date: 20090126
  Receipt Date: 20090114
  Transmission Date: 20090719
  Serious: Yes (Hospitalization, Other)
  Sender: FDA-Public Use
  Company Number: IT-ELI_LILLY_AND_COMPANY-IT200901003752

PATIENT
  Sex: Male
  Weight: 92 kg

DRUGS (5)
  1. SOMATROPIN [Suspect]
     Indication: GROWTH HORMONE DEFICIENCY
     Dosage: 0.5 MG, DAILY (1/D)
     Route: 065
     Dates: start: 20060222, end: 20060901
  2. EUTIROX [Concomitant]
     Indication: PRIMARY HYPOTHYROIDISM
     Dosage: UNK, UNKNOWN
     Route: 065
     Dates: start: 19940411
  3. PRAVASTATIN [Concomitant]
     Dosage: UNK, UNKNOWN
     Route: 065
     Dates: start: 20060101
  4. LANSOPRAZOLE [Concomitant]
     Indication: GASTRITIS
     Dosage: UNK, UNKNOWN
     Route: 065
     Dates: start: 20060101
  5. DOMPERIDONE [Concomitant]
     Indication: GASTRITIS
     Dosage: UNK, UNKNOWN
     Route: 065
     Dates: start: 20060101

REACTIONS (1)
  - PROSTATE CANCER [None]
